FAERS Safety Report 4666208-5 (Version None)
Quarter: 2005Q2

REPORT INFORMATION
  Report Type: 
  Country: None (occurrence: None)
  Receive Date: 20050517
  Receipt Date: 20050517
  Transmission Date: 20051028
  Serious: Yes (Other)
  Sender: FDA-Public Use
  Company Number: None

PATIENT
  Age: 36 Year
  Sex: Male

DRUGS (2)
  1. ALDARA [Suspect]
     Indication: LEUKODERMA
     Dosage: 2X /WEEK TOPICALLY
     Route: 061
     Dates: start: 20050101, end: 20050201
  2. ALDARA [Suspect]
     Indication: VITILIGO
     Dosage: 2X /WEEK TOPICALLY
     Route: 061
     Dates: start: 20050101, end: 20050201

REACTIONS (4)
  - PENIS DISORDER [None]
  - SCROTAL DISORDER [None]
  - SKIN DEPIGMENTATION [None]
  - SKIN INFLAMMATION [None]
